FAERS Safety Report 22305953 (Version 1)
Quarter: 2023Q2

REPORT INFORMATION
  Report Type: Report from Study
  Country: US (occurrence: US)
  Receive Date: 20230511
  Receipt Date: 20230511
  Transmission Date: 20230721
  Serious: Yes (Other)
  Sender: FDA-Public Use
  Company Number: US-ABBVIE-4760612

PATIENT
  Sex: Male

DRUGS (1)
  1. IMBRUVICA [Suspect]
     Active Substance: IBRUTINIB
     Indication: Product used for unknown indication
     Route: 048

REACTIONS (11)
  - Tachycardia [Unknown]
  - Chest discomfort [Unknown]
  - Arthralgia [Not Recovered/Not Resolved]
  - Gait inability [Unknown]
  - Atrial fibrillation [Unknown]
  - Prostate cancer [Unknown]
  - White blood cell count decreased [Recovering/Resolving]
  - Asthenia [Unknown]
  - Cardiac flutter [Unknown]
  - Mobility decreased [Unknown]
  - Blood glucose abnormal [Unknown]

NARRATIVE: CASE EVENT DATE: 20230101
